FAERS Safety Report 13025088 (Version 1)
Quarter: 2016Q4

REPORT INFORMATION
  Report Type: Spontaneous
  Country: US (occurrence: US)
  Receive Date: 20161213
  Receipt Date: 20161213
  Transmission Date: 20170207
  Serious: Yes (Hospitalization, Congenital Anomaly)
  Sender: FDA-Public Use
  Company Number: US-ABBVIE-16K-163-1801692-00

PATIENT
  Age: 0 Day
  Sex: Female
  Weight: 3.22 kg

DRUGS (2)
  1. HUMIRA [Suspect]
     Active Substance: ADALIMUMAB
     Indication: MATERNAL EXPOSURE TIMING UNSPECIFIED
     Route: 064
  2. HUMIRA [Suspect]
     Active Substance: ADALIMUMAB
     Route: 063

REACTIONS (6)
  - Meconium aspiration syndrome [Recovered/Resolved]
  - Meconium in amniotic fluid [Recovered/Resolved]
  - Foetal exposure during pregnancy [Unknown]
  - Dyspnoea [Recovered/Resolved]
  - Exposure during breast feeding [Unknown]
  - Accessory auricle [Not Recovered/Not Resolved]

NARRATIVE: CASE EVENT DATE: 20161024
